FAERS Safety Report 13670414 (Version 1)
Quarter: 2017Q2

REPORT INFORMATION
  Report Type: Spontaneous
  Country: DE (occurrence: DE)
  Receive Date: 20170620
  Receipt Date: 20170620
  Transmission Date: 20170830
  Serious: Yes (Hospitalization)
  Sender: FDA-Public Use
  Company Number: DE-BAYER-2017-112824

PATIENT
  Age: 34 Year
  Sex: Female
  Weight: 55 kg

DRUGS (1)
  1. MIRENA [Suspect]
     Active Substance: LEVONORGESTREL
     Dosage: 20 MCG/24HR, CONT
     Route: 015

REACTIONS (8)
  - Panic attack [Recovering/Resolving]
  - Depression [Recovering/Resolving]
  - Restlessness [Recovering/Resolving]
  - Anxiety [Recovering/Resolving]
  - Asthenia [Recovering/Resolving]
  - Headache [Recovering/Resolving]
  - Sleep disorder [Recovering/Resolving]
  - Fatigue [Recovering/Resolving]

NARRATIVE: CASE EVENT DATE: 20151215
